FAERS Safety Report 16654220 (Version 2)
Quarter: 2019Q4

REPORT INFORMATION
  Report Type: Report from Study
  Country: BR (occurrence: BR)
  Receive Date: 20190731
  Receipt Date: 20191030
  Transmission Date: 20200122
  Serious: Yes (Other)
  Sender: FDA-Public Use
  Company Number: PHHY2018BR043242

PATIENT
  Age: 90 Year
  Sex: Female
  Weight: 50 kg

DRUGS (7)
  1. RIVOTRIL [Suspect]
     Active Substance: CLONAZEPAM
     Indication: PRODUCT USED FOR UNKNOWN INDICATION
     Dosage: 0.5 MG, QD
     Route: 065
  2. EXELON [Suspect]
     Active Substance: RIVASTIGMINE TARTRATE
     Dosage: 1.5 MG, UNK
     Route: 048
  3. QUETIAPINE. [Concomitant]
     Active Substance: QUETIAPINE
     Indication: SEDATION
     Dosage: 2 DF (25 MG), QD
     Route: 048
  4. EBIX [Concomitant]
     Active Substance: MEMANTINE HYDROCHLORIDE
     Indication: THERAPEUTIC PRODUCT EFFECT INCREASED
     Dosage: 10 MG, BID
     Route: 065
  5. EXELON [Suspect]
     Active Substance: RIVASTIGMINE TARTRATE
     Indication: DEMENTIA ALZHEIMER^S TYPE
     Dosage: 6 MG, BID
     Route: 048
     Dates: start: 2004, end: 201804
  6. RIVOTRIL [Suspect]
     Active Substance: CLONAZEPAM
     Dosage: 1 MG, UNK
     Route: 065
  7. LEXAPRO [Concomitant]
     Active Substance: ESCITALOPRAM OXALATE
     Indication: ANTIDEPRESSANT THERAPY
     Dosage: 10 MG, BID
     Route: 065

REACTIONS (18)
  - Femur fracture [Unknown]
  - Hallucination [Not Recovered/Not Resolved]
  - Thalassaemia [Unknown]
  - Memory impairment [Unknown]
  - Feeling abnormal [Unknown]
  - Gait disturbance [Recovered/Resolved]
  - Ischaemia [Unknown]
  - Pneumonia [Recovered/Resolved]
  - Asthenia [Recovered/Resolved]
  - Nervousness [Recovered/Resolved]
  - Malaise [Unknown]
  - Drug ineffective [Not Recovered/Not Resolved]
  - Speech disorder [Not Recovered/Not Resolved]
  - Pneumonia [Recovered/Resolved with Sequelae]
  - Ill-defined disorder [Unknown]
  - Dysarthria [Unknown]
  - Dysphagia [Not Recovered/Not Resolved]
  - Oxygen saturation decreased [Recovered/Resolved]

NARRATIVE: CASE EVENT DATE: 201804
